FAERS Safety Report 9772149 (Version 1)
Quarter: 2013Q4

REPORT INFORMATION
  Report Type: Spontaneous
  Country: US (occurrence: None)
  Receive Date: 20131218
  Receipt Date: 20131218
  Transmission Date: 20140711
  Serious: Yes (Disabling)
  Sender: FDA-Public Use
  Company Number: None

PATIENT
  Age: 45 Year
  Sex: Female
  Weight: 61.24 kg

DRUGS (1)
  1. AVONEX [Suspect]
     Indication: MULTIPLE SCLEROSIS
     Dosage: APROX 10 INJECTIONS + OR - A CO 1 INJECTION PER WEEK ONCE A WEEK

REACTIONS (19)
  - Chest pain [None]
  - Eye irritation [None]
  - Skin discolouration [None]
  - Fatigue [None]
  - Dysphagia [None]
  - Lymphadenopathy mediastinal [None]
  - Photosensitivity reaction [None]
  - Skin hyperpigmentation [None]
  - Pruritus [None]
  - Scratch [None]
  - Osteoporosis [None]
  - Somnambulism [None]
  - Dysgeusia [None]
  - Parosmia [None]
  - Eye pain [None]
  - Oropharyngeal pain [None]
  - White blood cell count decreased [None]
  - Blood bilirubin increased [None]
  - Impaired healing [None]
